FAERS Safety Report 19309743 (Version 1)
Quarter: 2021Q2

REPORT INFORMATION
  Report Type: Spontaneous
  Country: JP (occurrence: JP)
  Receive Date: 20210526
  Receipt Date: 20210526
  Transmission Date: 20210717
  Serious: Yes (Hospitalization)
  Sender: FDA-Public Use
  Company Number: JP-009507513-2105JPN001367J

PATIENT
  Age: 78 Year
  Sex: Male
  Weight: 38 kg

DRUGS (7)
  1. ASPARA POTASSIUM [Concomitant]
     Active Substance: POTASSIUM ASPARTATE
     Dosage: UNK
     Route: 048
  2. ROSUVASTATIN OD [Concomitant]
     Dosage: UNK
     Route: 048
  3. LANSOPRAZOLE. [Concomitant]
     Active Substance: LANSOPRAZOLE
     Dosage: UNK
     Route: 048
     Dates: end: 20210304
  4. EZETIMIBE. [Concomitant]
     Active Substance: EZETIMIBE
     Dosage: UNK
     Route: 048
  5. KEYTRUDA [Suspect]
     Active Substance: PEMBROLIZUMAB
     Indication: NON-SMALL CELL LUNG CANCER
     Dosage: 200 MILLIGRAM/DOSE
     Route: 041
     Dates: start: 20201003, end: 20210201
  6. ZINC. [Concomitant]
     Active Substance: ZINC
     Dosage: UNK
     Route: 048
     Dates: end: 20210301
  7. CARBAZOCHROME SODIUM SULFONATE [Concomitant]
     Active Substance: CARBAZOCHROME SODIUM SULFONATE
     Dosage: UNK
     Route: 048

REACTIONS (1)
  - Autoimmune enteropathy [Recovering/Resolving]

NARRATIVE: CASE EVENT DATE: 20210220
